FAERS Safety Report 8040815-4 (Version None)
Quarter: 2012Q1

REPORT INFORMATION
  Report Type: 
  Country: None (occurrence: None)
  Receive Date: 20120112
  Receipt Date: 20120104
  Transmission Date: 20120608
  Serious: Yes (Other)
  Sender: FDA-Public Use
  Company Number: GB-BRISTOL-MYERS SQUIBB COMPANY-16333403

PATIENT
  Age: 51 Year
  Sex: Female

DRUGS (2)
  1. ABILIFY [Suspect]
  2. RIFAMPICIN [Interacting]
     Indication: TUBERCULOSIS

REACTIONS (3)
  - DRUG INTERACTION [None]
  - TUBERCULOSIS [None]
  - DRUG EFFECT DECREASED [None]
